FAERS Safety Report 13080156 (Version 1)
Quarter: 2017Q1

REPORT INFORMATION
  Report Type: Spontaneous
  Country: PT (occurrence: PT)
  Receive Date: 20170103
  Receipt Date: 20170103
  Transmission Date: 20170428
  Serious: Yes (Hospitalization)
  Sender: FDA-Public Use
  Company Number: PT-PFIZER INC-2016599137

PATIENT
  Age: 81 Year
  Sex: Female

DRUGS (5)
  1. DOXYCYCLINE MONOHYDRATE [Suspect]
     Active Substance: DOXYCYCLINE
     Indication: BRUCELLOSIS
     Dosage: 200 MG, DAILY
     Dates: start: 201410
  2. RIFAMPICIN [Interacting]
     Active Substance: RIFAMPIN
     Indication: BRUCELLOSIS
     Dosage: 600 MG, DAILY
     Dates: start: 201410
  3. AMLODIPINE [Concomitant]
     Active Substance: AMLODIPINE BESYLATE
     Dosage: 5 MG, UNK
  4. WARFARIN [Concomitant]
     Active Substance: WARFARIN
     Dosage: UNK
  5. OLMESARTAN [Concomitant]
     Active Substance: OLMESARTAN
     Dosage: 20 MG, UNK

REACTIONS (3)
  - Brucellosis [Recovered/Resolved]
  - Drug interaction [Recovered/Resolved]
  - Disease recurrence [Recovered/Resolved]

NARRATIVE: CASE EVENT DATE: 201502
